FAERS Safety Report 7515728-4 (Version None)
Quarter: 2011Q2

REPORT INFORMATION
  Report Type: 
  Country: None (occurrence: None)
  Receive Date: 20110526
  Receipt Date: 20110526
  Transmission Date: 20111010
  Serious: No
  Sender: FDA-Public Use
  Company Number: None

PATIENT
  Age: 74 Year
  Sex: Male
  Weight: 66.2252 kg

DRUGS (20)
  1. PREDNISONE [Concomitant]
  2. PROCRIT [Concomitant]
  3. OXYBUTYNIN [Concomitant]
  4. FUROSEMIDE [Concomitant]
  5. FOLIC ACID [Concomitant]
  6. ZOFRAN [Concomitant]
  7. FLOMAX [Concomitant]
  8. VITAMIN B-12 [Concomitant]
  9. DILAUDID [Concomitant]
  10. MELPHALAN HYDROCHLORIDE [Concomitant]
  11. NORTRIPTYLINE HCL [Concomitant]
  12. PRAVASTATIN [Concomitant]
  13. SOTALOL HCL [Concomitant]
  14. ANDRODERM [Concomitant]
  15. ASPIRIN [Concomitant]
  16. METHADONE HCL [Concomitant]
  17. FLUOXETINE HCL [Concomitant]
  18. REVLIMID [Suspect]
     Indication: MULTIPLE MYELOMA
     Dosage: REVLIMID 10MG DAILY ORAL
     Route: 048
     Dates: start: 20100203
  19. REVLIMID [Suspect]
     Indication: MULTIPLE MYELOMA
     Dosage: REVLIMID 10MG DAILY ORAL
     Route: 048
     Dates: start: 20100224
  20. TIZANIDINE HCL [Concomitant]

REACTIONS (5)
  - DEHYDRATION [None]
  - SOMNOLENCE [None]
  - BONE MARROW FAILURE [None]
  - ASTHENIA [None]
  - FATIGUE [None]
